FAERS Safety Report 23538959 (Version 2)
Quarter: 2024Q2

REPORT INFORMATION
  Report Type: Spontaneous
  Country: FR (occurrence: FR)
  Receive Date: 20240219
  Receipt Date: 20240404
  Transmission Date: 20240716
  Serious: Yes (Other)
  Sender: FDA-Public Use
  Company Number: FR-CELLTRION INC.-2024FR003775

PATIENT

DRUGS (16)
  1. RITUXIMAB [Suspect]
     Active Substance: RITUXIMAB
     Indication: Primary mediastinal large B-cell lymphoma
     Dosage: 500 MG, EVERY 3 WEEKS
     Route: 042
     Dates: start: 20201214
  2. ERYTHROPOIETIN [Suspect]
     Active Substance: ERYTHROPOIETIN
     Indication: Anaemia
     Dosage: 1 DF, EVERY 1 WEEK
     Route: 058
     Dates: start: 20201218
  3. FILGRASTIM [Suspect]
     Active Substance: FILGRASTIM
     Indication: Product used for unknown indication
     Dosage: 5 DF, 1 CYCLE
     Route: 058
     Dates: start: 20201216
  4. ALLOPURINOL [Suspect]
     Active Substance: ALLOPURINOL
     Indication: Gout
     Dosage: 300 MG, EVERY 1 DAY
     Route: 048
     Dates: start: 20201203
  5. METHYLPREDNISOLONE [Suspect]
     Active Substance: METHYLPREDNISOLONE
     Indication: B-cell lymphoma
     Dosage: 40 MG, 1 TOTAL
     Route: 037
     Dates: start: 20201216, end: 20201216
  6. METHOTREXATE [Suspect]
     Active Substance: METHOTREXATE
     Indication: B-cell lymphoma
     Dosage: 15 MG, 1 TOTAL
     Route: 037
     Dates: start: 20201216, end: 20201216
  7. METHOTREXATE [Suspect]
     Active Substance: METHOTREXATE
     Dosage: 2090 MG, EVERY 3 WEEKS
     Route: 042
     Dates: start: 20210106
  8. DOXORUBICIN [Suspect]
     Active Substance: DOXORUBICIN
     Indication: B-cell lymphoma
     Dosage: 70 MG, EVERY 3 WEEKS
     Route: 042
     Dates: start: 20201216
  9. CYTARABINE [Suspect]
     Active Substance: CYTARABINE
     Indication: B-cell lymphoma
     Dosage: 30 MG, 1 TOTAL
     Route: 037
     Dates: start: 20201216, end: 20201216
  10. VALACYCLOVIR HYDROCHLORIDE [Suspect]
     Active Substance: VALACYCLOVIR HYDROCHLORIDE
     Indication: Antiviral prophylaxis
     Dosage: 1000 MG, EVERY 1 DAY
     Route: 048
  11. AMITRIPTYLINE HYDROCHLORIDE [Suspect]
     Active Substance: AMITRIPTYLINE HYDROCHLORIDE
     Indication: Occipital neuralgia
     Dosage: 10 DROP, EVERY 1 DAY
     Route: 048
  12. PREDNISOLONE [Suspect]
     Active Substance: PREDNISOLONE
     Indication: B-cell lymphoma
     Dosage: 360 MG, EVERY 21 DAYS
     Route: 048
     Dates: start: 20201211
  13. VINCRISTINE [Suspect]
     Active Substance: VINCRISTINE
     Indication: B-cell lymphoma
     Dosage: 2 MG, EVERY 3 WEEK
     Route: 042
     Dates: start: 20201211
  14. CYCLOPHOSPHAMIDE [Suspect]
     Active Substance: CYCLOPHOSPHAMIDE
     Indication: B-cell lymphoma
     Dosage: 1070 MG, EVERY 3 WEEK
     Route: 042
     Dates: start: 20201211
  15. ONDANSETRON [Suspect]
     Active Substance: ONDANSETRON
     Indication: Nausea
     Dosage: 4 DF, 1 CYCLE
     Route: 048
     Dates: start: 20201211
  16. ATOVAQUONE [Suspect]
     Active Substance: ATOVAQUONE
     Indication: Antifungal prophylaxis
     Dosage: 1500 MG, EVERY 1 DAY
     Route: 048

REACTIONS (2)
  - Cerebellar stroke [Not Recovered/Not Resolved]
  - Intentional product use issue [Unknown]

NARRATIVE: CASE EVENT DATE: 20210128
